FAERS Safety Report 7055940-4 (Version None)
Quarter: 2010Q4

REPORT INFORMATION
  Report Type: 
  Country: None (occurrence: None)
  Receive Date: 20101021
  Receipt Date: 20101015
  Transmission Date: 20110411
  Serious: Yes (Death, Hospitalization)
  Sender: FDA-Public Use
  Company Number: A0777175A

PATIENT
  Age: 62 Year
  Sex: Female

DRUGS (1)
  1. AVANDAMET [Suspect]
     Route: 048
     Dates: start: 20050321, end: 20050323

REACTIONS (4)
  - CARDIOPULMONARY FAILURE [None]
  - DEATH [None]
  - HYPOGLYCAEMIA [None]
  - MYOCARDIAL INFARCTION [None]
